FAERS Safety Report 5647653-8 (Version None)
Quarter: 2008Q1

REPORT INFORMATION
  Report Type: 
  Country: None (occurrence: None)
  Receive Date: 20080303
  Receipt Date: 20080220
  Transmission Date: 20080703
  Serious: Yes (Other)
  Sender: FDA-Public Use
  Company Number: GB-PFIZER INC-2008013043

PATIENT
  Sex: Male
  Weight: 58.5 kg

DRUGS (1)
  1. CHANTIX [Suspect]
     Route: 048
     Dates: start: 20071031, end: 20080208

REACTIONS (3)
  - HEADACHE [None]
  - MIGRAINE [None]
  - VISUAL DISTURBANCE [None]
